FAERS Safety Report 8073500-3 (Version None)
Quarter: 2012Q1

REPORT INFORMATION
  Report Type: 
  Country: None (occurrence: None)
  Receive Date: 20120126
  Receipt Date: 20120126
  Transmission Date: 20120608
  Serious: Yes (Hospitalization, Other)
  Sender: FDA-Public Use
  Company Number: None

PATIENT
  Age: 27 Year
  Sex: Female
  Weight: 62.595 kg

DRUGS (1)
  1. LEXAPRO [Suspect]
     Indication: ANXIETY
     Dosage: 1 TAB
     Route: 048
     Dates: start: 20110103, end: 20111127

REACTIONS (5)
  - TREMOR [None]
  - BLINDNESS [None]
  - MENTAL IMPAIRMENT [None]
  - MIGRAINE [None]
  - SPEECH DISORDER [None]
